FAERS Safety Report 8558894 (Version 2)
Quarter: 2013Q1

REPORT INFORMATION
  Report Type: Spontaneous
  Country: US (occurrence: US)
  Receive Date: 20120511
  Receipt Date: 20130211
  Transmission Date: 20140127
  Serious: Yes (Hospitalization)
  Sender: FDA-Public Use
  Company Number: US-GLAXOSMITHKLINE-A0922124A

PATIENT
  Sex: Male

DRUGS (1)
  1. AVANDIA [Suspect]
     Indication: DIABETES MELLITUS
     Dosage: 4MG PER DAY
     Route: 048
     Dates: start: 19991025, end: 20000406

REACTIONS (6)
  - Cardiac failure congestive [Unknown]
  - Atrial flutter [Unknown]
  - Atrial fibrillation [Unknown]
  - Atrioventricular block complete [Unknown]
  - Presyncope [Unknown]
  - Nodal arrhythmia [Unknown]
